FAERS Safety Report 7179769-1 (Version None)
Quarter: 2010Q4

REPORT INFORMATION
  Report Type: 
  Country: None (occurrence: None)
  Receive Date: 20101221
  Receipt Date: 20100202
  Transmission Date: 20110411
  Serious: No
  Sender: FDA-Public Use
  Company Number: US-BRISTOL-MYERS SQUIBB COMPANY-14970560

PATIENT
  Age: 63 Year
  Sex: Male

DRUGS (1)
  1. QUESTRAN [Suspect]
     Indication: BLOOD CHOLESTEROL INCREASED
     Dosage: 1 DF=ONE SCOOP ONCE A DAY EVERY MORNING
     Route: 048

REACTIONS (1)
  - PROCTALGIA [None]
